FAERS Safety Report 8965427 (Version 1)
Quarter: 2012Q4

REPORT INFORMATION
  Report Type: 
  Country: CN (occurrence: CN)
  Receive Date: 20121213
  Receipt Date: 20121213
  Transmission Date: 20130627
  Serious: Yes (Other)
  Sender: FDA-Public Use
  Company Number: PHHY2012CN109382

PATIENT
  Age: 39 Year
  Sex: Female
  Weight: 56 kg

DRUGS (2)
  1. VOLTAREN [Suspect]
     Indication: UPPER RESPIRATORY TRACT INFECTION
     Dosage: 10 mg, QD
     Dates: start: 20100817, end: 20100818
  2. POTASSIUM CHLORIDE [Concomitant]

REACTIONS (9)
  - Amaurosis [Recovered/Resolved]
  - Anaphylactoid reaction [Recovered/Resolved]
  - Pruritus [Recovered/Resolved]
  - Loss of consciousness [Recovered/Resolved]
  - Peripheral coldness [Recovered/Resolved]
  - Hyperhidrosis [Recovered/Resolved]
  - Blood pressure decreased [Recovered/Resolved]
  - Fatigue [Recovered/Resolved]
  - Blood potassium decreased [Recovered/Resolved]
